FAERS Safety Report 21088282 (Version 1)
Quarter: 2022Q3

REPORT INFORMATION
  Report Type: Spontaneous
  Country: US (occurrence: US)
  Receive Date: 20220715
  Receipt Date: 20220715
  Transmission Date: 20221027
  Serious: No
  Sender: FDA-Public Use
  Company Number: US-ELI_LILLY_AND_COMPANY-US202207005566

PATIENT
  Sex: Female

DRUGS (1)
  1. VERZENIO [Suspect]
     Active Substance: ABEMACICLIB
     Indication: Breast cancer female
     Dosage: 100 MG, DAILY
     Route: 048

REACTIONS (4)
  - Infection [Unknown]
  - Tumour marker increased [Unknown]
  - Oropharyngeal discomfort [Unknown]
  - Dysphagia [Unknown]
